FAERS Safety Report 17316526 (Version 9)
Quarter: 2020Q4

REPORT INFORMATION
  Report Type: Report from Study
  Country: CA (occurrence: CA)
  Receive Date: 20200124
  Receipt Date: 20201223
  Transmission Date: 20210113
  Serious: Yes (Other)
  Sender: FDA-Public Use
  Company Number: CA-JNJFOC-20200124751

PATIENT
  Age: 11 Year
  Sex: Male
  Weight: 49 kg

DRUGS (5)
  1. REMICADE [Suspect]
     Active Substance: INFLIXIMAB
     Route: 042
  2. REMICADE [Suspect]
     Active Substance: INFLIXIMAB
     Route: 042
  3. REMICADE [Suspect]
     Active Substance: INFLIXIMAB
     Indication: CROHN^S DISEASE
     Dosage: ON 25-FEB-2020, THE PATIENT RECEIVED 10TH INFLIXIMAB INFUSION FOR DOSE OF 450 MG
     Route: 042
     Dates: start: 20190510
  4. REMICADE [Suspect]
     Active Substance: INFLIXIMAB
     Route: 042
  5. REMICADE [Suspect]
     Active Substance: INFLIXIMAB
     Route: 042

REACTIONS (6)
  - Anal incontinence [Unknown]
  - Poor venous access [Recovered/Resolved]
  - Therapeutic product effect decreased [Unknown]
  - Anxiety [Recovered/Resolved]
  - Crohn^s disease [Recovered/Resolved]
  - Depressed mood [Recovered/Resolved]

NARRATIVE: CASE EVENT DATE: 20191226
